FAERS Safety Report 7835848-4 (Version None)
Quarter: 2011Q4

REPORT INFORMATION
  Report Type: 
  Country: None (occurrence: None)
  Receive Date: 20111024
  Receipt Date: 20111019
  Transmission Date: 20120403
  Serious: Yes (Other)
  Sender: FDA-Public Use
  Company Number: BR-PFIZER INC-2011207103

PATIENT
  Age: 52 Year
  Sex: Female
  Weight: 64 kg

DRUGS (5)
  1. VARENICLINE TARTRATE [Suspect]
     Dosage: 1 MG, 2X/DAY
     Route: 048
     Dates: start: 20110101
  2. VARENICLINE TARTRATE [Suspect]
     Indication: SMOKING CESSATION THERAPY
     Dosage: UNK
     Route: 048
     Dates: start: 20110913, end: 20110101
  3. HALDOL [Concomitant]
     Indication: ANXIOLYTIC THERAPY
     Dosage: 0.5 MG, 1X/DAY
     Dates: start: 20100101
  4. CLONAZEPAM [Concomitant]
     Indication: DEPRESSION
     Dosage: UNK, 3X/DAY
     Dates: start: 19960101
  5. PHENERGAN [Concomitant]
     Indication: MENTAL DISORDER
     Dosage: UNK, ONCE DAILY
     Dates: start: 20100101

REACTIONS (1)
  - LIVER DISORDER [None]
